FAERS Safety Report 25106929 (Version 2)
Quarter: 2025Q3

REPORT INFORMATION
  Report Type: Spontaneous
  Country: EU (occurrence: EU)
  Receive Date: 20250321
  Receipt Date: 20250818
  Transmission Date: 20251020
  Serious: Yes (Death)
  Sender: CSL BEHRING
  Company Number: EU-BEH-2025199428

PATIENT
  Age: 63 Year
  Sex: Female

DRUGS (6)
  1. VELTASSA [Suspect]
     Active Substance: PATIROMER
     Indication: Hyperkalaemia
     Route: 065
     Dates: start: 20210630
  2. VELTASSA [Suspect]
     Active Substance: PATIROMER
     Route: 065
     Dates: start: 20210928
  3. VELTASSA [Suspect]
     Active Substance: PATIROMER
     Route: 065
     Dates: start: 20220114
  4. PROPANOL (PROPRANOLOL HYDROCHLORIDE) [Concomitant]
     Active Substance: PROPRANOLOL HYDROCHLORIDE
  5. TACROLIMUS [Concomitant]
     Active Substance: TACROLIMUS
  6. AMLODIPINE [Concomitant]
     Active Substance: AMLODIPINE BESYLATE

REACTIONS (2)
  - Death [Fatal]
  - Hypercalcaemia [Recovered/Resolved]

NARRATIVE: CASE EVENT DATE: 20220114
